FAERS Safety Report 10559881 (Version 1)
Quarter: 2014Q4

REPORT INFORMATION
  Report Type: Spontaneous
  Country: IT (occurrence: None)
  Receive Date: 20141030
  Receipt Date: 20141030
  Transmission Date: 20150529
  Serious: Yes (Other)
  Sender: FDA-Public Use
  Company Number: 2593159

PATIENT
  Age: 84 Year
  Sex: Male
  Weight: 79 kg

DRUGS (1)
  1. DOCETAXEL. [Suspect]
     Active Substance: DOCETAXEL
     Indication: PROSTATE CANCER
     Route: 042
     Dates: start: 20140212, end: 20140924

REACTIONS (2)
  - Anaemia [None]
  - Thrombocytopenia [None]

NARRATIVE: CASE EVENT DATE: 20140909
